FAERS Safety Report 9914717 (Version 2)
Quarter: 2014Q1

REPORT INFORMATION
  Report Type: Spontaneous
  Country: PH (occurrence: PH)
  Receive Date: 20140220
  Receipt Date: 20140311
  Transmission Date: 20141002
  Serious: Yes (Death)
  Sender: FDA-Public Use
  Company Number: PH-009507513-1402PHL009102

PATIENT
  Age: 78 Year
  Sex: Male

DRUGS (1)
  1. JANUVIA [Suspect]
     Dosage: 1 TABLET, ONCE A DAY
     Route: 048
     Dates: start: 201208, end: 201312

REACTIONS (1)
  - Aneurysm [Fatal]
